FAERS Safety Report 7419330-4 (Version None)
Quarter: 2011Q2

REPORT INFORMATION
  Report Type: 
  Country: None (occurrence: None)
  Receive Date: 20110415
  Receipt Date: 20110406
  Transmission Date: 20111010
  Serious: Yes (Hospitalization, Other)
  Sender: FDA-Public Use
  Company Number: US-ASTRAZENECA-2011SE19518

PATIENT
  Age: 60 Year
  Sex: Female

DRUGS (1)
  1. CRESTOR [Suspect]
     Route: 048

REACTIONS (8)
  - LOWER LIMB FRACTURE [None]
  - HIP FRACTURE [None]
  - HYPERSOMNIA [None]
  - LIMB DISCOMFORT [None]
  - JOINT DISLOCATION [None]
  - DRUG DOSE OMISSION [None]
  - FALL [None]
  - BLOOD CHOLESTEROL INCREASED [None]
